FAERS Safety Report 11483325 (Version 3)
Quarter: 2015Q4

REPORT INFORMATION
  Report Type: Spontaneous
  Country: US (occurrence: US)
  Receive Date: 20150903
  Receipt Date: 20151110
  Transmission Date: 20160304
  Serious: No
  Sender: FDA-Public Use
  Company Number: US-ELI_LILLY_AND_COMPANY-US201108001624

PATIENT
  Sex: Female

DRUGS (6)
  1. LORTAB [Concomitant]
     Active Substance: ACETAMINOPHEN\HYDROCODONE BITARTRATE
     Indication: PAIN
     Dosage: UNK
     Dates: end: 201107
  2. FORTEO [Suspect]
     Active Substance: TERIPARATIDE
     Dosage: 20 UG, QD
  3. CYMBALTA [Suspect]
     Active Substance: DULOXETINE HYDROCHLORIDE
     Indication: PAIN
     Dosage: 60 MG, QD
  4. FORTEO [Suspect]
     Active Substance: TERIPARATIDE
     Indication: OSTEOPOROSIS
     Dosage: 20 UG, QD
     Dates: start: 20110716
  5. FORTEO [Suspect]
     Active Substance: TERIPARATIDE
     Dosage: 20 UG, QD
  6. FORTEO [Suspect]
     Active Substance: TERIPARATIDE
     Dosage: 20 UG, QD

REACTIONS (15)
  - Lip injury [Unknown]
  - Constipation [Not Recovered/Not Resolved]
  - Gastritis [Unknown]
  - Injection site pain [Not Recovered/Not Resolved]
  - Hiatus hernia [Unknown]
  - Tooth loss [Recovered/Resolved]
  - Gingival erythema [Not Recovered/Not Resolved]
  - Abdominal pain upper [Unknown]
  - Headache [Recovering/Resolving]
  - Injection site bruising [Unknown]
  - Limb discomfort [Unknown]
  - Dental care [Unknown]
  - Off label use [Unknown]
  - Fall [Unknown]
  - Injection site discomfort [Unknown]
